FAERS Safety Report 8179714-6 (Version None)
Quarter: 2012Q1

REPORT INFORMATION
  Report Type: 
  Country: None (occurrence: None)
  Receive Date: 20120229
  Receipt Date: 20120229
  Transmission Date: 20120608
  Serious: Yes (Other)
  Sender: FDA-Public Use
  Company Number: None

PATIENT
  Sex: Female

DRUGS (1)
  1. AVEENO INTENSE RELIEF HAND CREAM 3.5OZ [Suspect]
     Indication: THERAPEUTIC SKIN CARE TOPICAL
     Dosage: QUARTER, ONCE A DAY, TOPICAL
     Route: 061
     Dates: start: 20120120, end: 20120121

REACTIONS (2)
  - PRURITUS [None]
  - ANAPHYLACTOID REACTION [None]
